FAERS Safety Report 8013881-X (Version None)
Quarter: 2011Q4

REPORT INFORMATION
  Report Type: 
  Country: None (occurrence: None)
  Receive Date: 20111229
  Receipt Date: 20111227
  Transmission Date: 20120403
  Serious: Yes (Other)
  Sender: FDA-Public Use
  Company Number: US-PFIZER INC-2006117799

PATIENT
  Sex: Male
  Weight: 63.492 kg

DRUGS (6)
  1. VITAMIN TAB [Concomitant]
     Dosage: UNK
  2. LIPITOR [Suspect]
     Indication: BLOOD CHOLESTEROL INCREASED
     Dosage: 40 MG, 1X/DAY
     Dates: start: 19990101
  3. PREVACID [Suspect]
     Dosage: 30 MG, UNK
     Dates: start: 19990101
  4. ACETYLSALICYLIC ACID SRT [Concomitant]
     Dosage: UNK
  5. LIPITOR [Suspect]
     Dosage: 80 MG, 1X/DAY
  6. LIPITOR [Suspect]
     Dosage: UNK, DAILY

REACTIONS (3)
  - TONGUE DISCOLOURATION [None]
  - DYSGEUSIA [None]
  - GALLBLADDER OPERATION [None]
